FAERS Safety Report 5447552-0 (Version None)
Quarter: 2007Q3

REPORT INFORMATION
  Report Type: 
  Country: None (occurrence: None)
  Receive Date: 20070905
  Receipt Date: 20070828
  Transmission Date: 20080115
  Serious: Yes (Life-Threatening)
  Sender: FDA-Public Use
  Company Number: GXKR2007DE07255

PATIENT
  Sex: 0

DRUGS (1)
  1. CIMEHEXAL [Suspect]
     Dosage: ONCE/SINGLE, INTRAVENOUS
     Route: 042

REACTIONS (1)
  - RESUSCITATION [None]
